FAERS Safety Report 18320531 (Version 1)
Quarter: 2020Q3

REPORT INFORMATION
  Report Type: Spontaneous
  Country: CN (occurrence: CN)
  Receive Date: 20200928
  Receipt Date: 20200928
  Transmission Date: 20201103
  Serious: Yes (Other)
  Sender: FDA-Public Use
  Company Number: CN-BAXTER-2020BAX019386

PATIENT
  Age: 4 Year
  Sex: Female
  Weight: 16.4 kg

DRUGS (8)
  1. ENDOXAN [Suspect]
     Active Substance: CYCLOPHOSPHAMIDE
     Indication: ACUTE LYMPHOCYTIC LEUKAEMIA
     Dosage: CYCLOPHOSPHAMIDE + 0.9% SODIUM CHLORIDE 250 ML
     Route: 041
     Dates: start: 20200729, end: 20200730
  2. 5% GLUCOSE  INJECTION [Suspect]
     Active Substance: DEXTROSE
     Indication: MEDICATION DILUTION
     Route: 041
     Dates: start: 20200729, end: 20200730
  3. 0.9% SODIUM CHLORIDE INJECTION [Suspect]
     Active Substance: SODIUM CHLORIDE
     Dosage: 0.9% SODIUM CHLORIDE 20ML + VINDESINE SULFATE 2 MG
     Route: 040
     Dates: start: 20200729, end: 20200729
  4. DEXAMETHASONE ACETATE [Suspect]
     Active Substance: DEXAMETHASONE ACETATE
     Indication: ACUTE LYMPHOCYTIC LEUKAEMIA
     Dosage: TABLETS
     Route: 048
     Dates: start: 20200729, end: 20200812
  5. 0.9% SODIUM CHLORIDE INJECTION [Suspect]
     Active Substance: SODIUM CHLORIDE
     Indication: MEDICATION DILUTION
     Dosage: CYCLOPHOSPHAMIDE + 0.9% SODIUM CHLORIDE 250 ML
     Route: 041
     Dates: start: 20200729, end: 20200730
  6. 0.9% SODIUM CHLORIDE INJECTION [Suspect]
     Active Substance: SODIUM CHLORIDE
     Dosage: 0.9% SODIUM CHLORIDE 250ML + EPIRUBICIN HYDROCHLORIDE 20 MG
     Route: 041
     Dates: start: 20200729, end: 20200730
  7. FAMAXIN (EPIRUBICIN HYDROCHLORIDE) [Suspect]
     Active Substance: EPIRUBICIN HYDROCHLORIDE
     Indication: ACUTE LYMPHOCYTIC LEUKAEMIA
     Dosage: 0.9% SODIUM CHLORIDE 250ML + EPIRUBICIN HYDROCHLORIDE 20 MG
     Route: 041
     Dates: start: 20200729, end: 20200730
  8. XIAIKE [Suspect]
     Active Substance: VINDESINE
     Indication: ACUTE LYMPHOCYTIC LEUKAEMIA
     Dosage: 0.9% SODIUM CHLORIDE 20ML + VINDESINE SULFATE 2 MG
     Route: 040
     Dates: start: 20200729, end: 20200729

REACTIONS (1)
  - Myelosuppression [Recovering/Resolving]

NARRATIVE: CASE EVENT DATE: 20200807
